FAERS Safety Report 9384473 (Version 3)
Quarter: 2014Q2

REPORT INFORMATION
  Report Type: Report from Study
  Country: JP (occurrence: JP)
  Receive Date: 20130705
  Receipt Date: 20140604
  Transmission Date: 20141212
  Serious: Yes (Death, Hospitalization)
  Sender: FDA-Public Use
  Company Number: JP-AMGEN-JPNCT2013047220

PATIENT
  Age: 92 Year
  Sex: Female
  Weight: 38 kg

DRUGS (20)
  1. DARBEPOETIN ALFA [Suspect]
     Indication: NEPHROGENIC ANAEMIA
     Dosage: 120 MUG, Q3WK
     Route: 058
     Dates: start: 20110407, end: 20130509
  2. SORBITOL [Concomitant]
     Indication: NEPHROSCLEROSIS
     Dosage: UNK
     Route: 048
  3. FERRUM [Concomitant]
     Dosage: UNK
     Route: 048
  4. ZYLORIC [Concomitant]
     Dosage: UNK
     Route: 048
  5. ARGAMATE [Concomitant]
     Dosage: UNK
     Route: 048
  6. LASIX [Concomitant]
     Indication: NEPHROSCLEROSIS
     Dosage: UNK
     Route: 048
  7. FEBURIC [Concomitant]
     Dosage: UNK
     Route: 048
  8. KREMEZIN [Concomitant]
     Dosage: UNK
     Route: 048
  9. MIRCERA [Concomitant]
     Indication: NEPHROSCLEROSIS
     Dosage: UNK
     Route: 065
  10. NEXIUM [Concomitant]
     Indication: NEPHROSCLEROSIS
     Dosage: UNK
     Route: 048
  11. NORVASC [Concomitant]
     Indication: NEPHROSCLEROSIS
     Dosage: UNK
     Route: 048
  12. VASOLAN [Concomitant]
     Indication: NEPHROSCLEROSIS
     Dosage: UNK
     Route: 048
  13. MUCOSTA [Concomitant]
     Indication: NEPHROSCLEROSIS
     Dosage: UNK
     Route: 048
  14. FRANDOL S [Concomitant]
     Indication: NEPHROSCLEROSIS
     Dosage: UNK
     Route: 062
  15. RIVOTRIL [Concomitant]
     Indication: NEPHROSCLEROSIS
     Dosage: UNK
     Route: 048
  16. SULBACILLIN [Concomitant]
     Indication: NEPHROSCLEROSIS
     Dosage: UNK
     Route: 065
  17. TRANSAMIN [Concomitant]
     Indication: NEPHROSCLEROSIS
     Dosage: UNK
     Route: 065
  18. VITAMEDIN                          /00176001/ [Concomitant]
     Dosage: UNK
     Route: 065
  19. OMEPRAL                            /00661201/ [Concomitant]
     Indication: NEPHROSCLEROSIS
     Dosage: UNK
     Route: 065
  20. PRIMOBOLAN                         /00044802/ [Concomitant]
     Indication: NEPHROSCLEROSIS
     Dosage: UNK
     Route: 065

REACTIONS (4)
  - Cardiac failure congestive [Recovering/Resolving]
  - Rectal ulcer haemorrhage [Fatal]
  - Atrial fibrillation [Recovering/Resolving]
  - Rectal ulcer [Recovered/Resolved]
